FAERS Safety Report 23918982 (Version 1)
Quarter: 2024Q2

REPORT INFORMATION
  Report Type: Spontaneous
  Country: US (occurrence: US)
  Receive Date: 20240530
  Receipt Date: 20240530
  Transmission Date: 20240716
  Serious: Yes (Other)
  Sender: FDA-Public Use
  Company Number: US-GLAXOSMITHKLINE-US2024066424

PATIENT

DRUGS (1)
  1. TRELEGY ELLIPTA [Suspect]
     Active Substance: FLUTICASONE FUROATE\UMECLIDINIUM BROMIDE\VILANTEROL TRIFENATATE
     Indication: Pulmonary oedema
     Dosage: 1 PUFF(S), QD, 100
     Dates: start: 2021

REACTIONS (2)
  - Splenectomy [Unknown]
  - Pancreatectomy [Unknown]

NARRATIVE: CASE EVENT DATE: 20240503
